FAERS Safety Report 8607983-4 (Version None)
Quarter: 2012Q3

REPORT INFORMATION
  Report Type: 
  Country: None (occurrence: None)
  Receive Date: 20120821
  Receipt Date: 20120807
  Transmission Date: 20120928
  Serious: Yes (Death)
  Sender: FDA-Public Use
  Company Number: JP-SANOFI-AVENTIS-2012SA053676

PATIENT
  Age: 59 Year
  Sex: Female
  Weight: 87 kg

DRUGS (1)
  1. ENOXAPARIN SODIUM [Suspect]
     Indication: THROMBOSIS PROPHYLAXIS
     Route: 058
     Dates: start: 20120703, end: 20120706

REACTIONS (7)
  - HEPARIN-INDUCED THROMBOCYTOPENIA [None]
  - HEMIPARESIS [None]
  - HYPOAESTHESIA [None]
  - EYELID PTOSIS [None]
  - RESPIRATORY DEPRESSION [None]
  - PUPILS UNEQUAL [None]
  - HAEMORRHAGIC CEREBRAL INFARCTION [None]
